FAERS Safety Report 8619393-4 (Version None)
Quarter: 2012Q3

REPORT INFORMATION
  Report Type: 
  Country: None (occurrence: None)
  Receive Date: 20120824
  Receipt Date: 20120813
  Transmission Date: 20120928
  Serious: Yes (Other)
  Sender: FDA-Public Use
  Company Number: MX-BRISTOL-MYERS SQUIBB COMPANY-16858946

PATIENT
  Age: 48 Year
  Sex: Female
  Weight: 67 kg

DRUGS (2)
  1. AMARYL [Suspect]
     Indication: TYPE 2 DIABETES MELLITUS
     Dosage: 1 TABLET/24 HR DEC11-FEB12 1 TABLET/12 HR FEB12-JUN12
     Route: 048
     Dates: start: 20111201, end: 20120601
  2. IRBESARTAN [Suspect]
     Indication: HYPERTENSION
     Route: 048
     Dates: start: 20111201, end: 20120601

REACTIONS (2)
  - HYPERGLYCAEMIA [None]
  - HYPERTENSION [None]
